FAERS Safety Report 9918993 (Version 1)
Quarter: 2014Q1

REPORT INFORMATION
  Report Type: Spontaneous
  Country: US (occurrence: US)
  Receive Date: 20140224
  Receipt Date: 20140224
  Transmission Date: 20141002
  Serious: No
  Sender: FDA-Public Use
  Company Number: US-BRISTOL-MYERS SQUIBB COMPANY-17392689

PATIENT
  Age: 66 Year
  Sex: Female

DRUGS (11)
  1. METFORMIN HCL [Suspect]
  2. ASPIRIN [Concomitant]
  3. SULFA [Concomitant]
  4. NAPROXEN [Concomitant]
  5. BENADRYL [Concomitant]
  6. LIPITOR [Concomitant]
  7. XANAX [Concomitant]
  8. NEXIUM [Concomitant]
  9. GLUCOTROL [Concomitant]
  10. SYNTHROID [Concomitant]
  11. PAXIL [Concomitant]

REACTIONS (1)
  - Drug hypersensitivity [Unknown]
